FAERS Safety Report 7021288-7 (Version None)
Quarter: 2010Q3

REPORT INFORMATION
  Report Type: 
  Country: None (occurrence: None)
  Receive Date: 20100927
  Receipt Date: 20100914
  Transmission Date: 20110219
  Serious: Yes (Hospitalization)
  Sender: FDA-Public Use
  Company Number: AUR-APL-2010-02294

PATIENT
  Age: 19 Year
  Sex: Female

DRUGS (2)
  1. CITALOPRAM HYDROBROMIDE [Suspect]
     Indication: ANXIETY
     Dosage: 60MG, DAILY, ORAL
     Route: 048
     Dates: start: 20080912
  2. TRAMADOL HYDROCHLORIDE [Suspect]
     Indication: POSTOPERATIVE ANALGESIA
     Dosage: 100MG, 2 DOSES
     Dates: start: 20100831, end: 20100901

REACTIONS (4)
  - ANXIETY [None]
  - MUSCLE TWITCHING [None]
  - MYOCLONUS [None]
  - THERAPEUTIC AGENT TOXICITY [None]
